FAERS Safety Report 5118782-2 (Version None)
Quarter: 2006Q4

REPORT INFORMATION
  Report Type: 
  Country: None (occurrence: None)
  Receive Date: 20061002
  Receipt Date: 20060918
  Transmission Date: 20070319
  Serious: Yes (Hospitalization)
  Sender: FDA-Public Use
  Company Number: FI-ROCHE-463848

PATIENT
  Age: 36 Year
  Sex: Male

DRUGS (13)
  1. FUZEON [Suspect]
     Route: 058
     Dates: start: 20060725
  2. FOSCAVIR [Suspect]
     Dosage: DOSAGE REPORTED AS 6000; FORM REPORTED AS INFUSION.
     Route: 042
     Dates: start: 20060725, end: 20060808
  3. NORVIR [Suspect]
     Route: 048
     Dates: start: 20060725
  4. VIREAD [Suspect]
     Dosage: DOSAGE REPORTED AS 1X1.
     Route: 048
     Dates: start: 20050802
  5. COMBIVIR [Suspect]
     Dosage: STRENGTH REPORTED AS 300/150MG.
     Route: 048
  6. TMC 114 [Suspect]
     Dosage: THERAPY DETAILS REPORTED AS 300 MG 2X2.
     Route: 065
     Dates: start: 20060725
  7. TMC125 [Suspect]
     Dosage: THERAPY DETAILS REPORTED AS 100 MG 2X2.
     Route: 065
     Dates: start: 20060725
  8. CALCICHEW [Concomitant]
     Route: 048
     Dates: start: 20060725, end: 20060808
  9. EMGESAN [Concomitant]
     Dates: start: 20060725, end: 20060808
  10. NEUPOGEN [Concomitant]
     Indication: NEUTROPENIA
     Dosage: REPORTED THAT PATIENT TAKES NEUPOGEN FOR YEARS.
     Route: 058
  11. COTRIM [Concomitant]
     Dosage: PATIENT TAKES COTRIM 1X1 FOR YEARS.
     Route: 048
  12. DIFLUCAN [Concomitant]
     Indication: STOMATITIS
     Dosage: PATIENT TAKES DIFLUCAN FOR MONTHS.
     Route: 048
  13. OMEPRAZOLE [Concomitant]
     Dosage: PATIENT TAKES OMEPRAZOLE FOR YEARS.
     Route: 048

REACTIONS (5)
  - ANGINA PECTORIS [None]
  - ATRIAL FIBRILLATION [None]
  - BLOOD CREATINE PHOSPHOKINASE INCREASED [None]
  - CARDIAC HYPERTROPHY [None]
  - INJECTION SITE REACTION [None]
